FAERS Safety Report 15514673 (Version 1)
Quarter: 2018Q4

REPORT INFORMATION
  Report Type: Other
  Country: None (occurrence: MM)
  Receive Date: 20181016
  Receipt Date: 20181016
  Transmission Date: 20190205
  Serious: Yes (Other)
  Sender: FDA-Public Use
  Company Number: MM-POPULATION COUNCIL, INC.-2056279

PATIENT
  Age: 33 Year
  Sex: Female
  Weight: 67 kg

DRUGS (1)
  1. JADELLE [Suspect]
     Active Substance: LEVONORGESTREL
     Indication: CONTRACEPTION
     Route: 059
     Dates: start: 20150204, end: 20180927

REACTIONS (2)
  - Pregnancy with implant contraceptive [None]
  - Drug ineffective [None]

NARRATIVE: CASE EVENT DATE: 201808
